FAERS Safety Report 16310361 (Version 2)
Quarter: 2019Q3

REPORT INFORMATION
  Report Type: Spontaneous
  Country: US (occurrence: US)
  Receive Date: 20190514
  Receipt Date: 20190715
  Transmission Date: 20191004
  Serious: Yes (Other)
  Sender: FDA-Public Use
  Company Number: US-PFIZER INC-2019200214

PATIENT
  Age: 62 Year
  Sex: Female
  Weight: 104.3 kg

DRUGS (1)
  1. CELECOXIB. [Suspect]
     Active Substance: CELECOXIB
     Indication: ARTHRITIS
     Dosage: 200 MG, 2X/DAY (1 CAPSULE BY MOUTH TWICE DAILY (ONCE IN THE MORNING AND ONCE AT NIGHT))
     Route: 048

REACTIONS (3)
  - Swelling [Recovering/Resolving]
  - Joint swelling [Recovering/Resolving]
  - Peripheral swelling [Recovering/Resolving]
